FAERS Safety Report 26049444 (Version 2)
Quarter: 2025Q4

REPORT INFORMATION
  Report Type: Spontaneous
  Country: US (occurrence: US)
  Receive Date: 20251115
  Receipt Date: 20251206
  Transmission Date: 20260117
  Serious: No
  Sender: ACCORD
  Company Number: US-Accord-509934

PATIENT
  Age: 67 Year
  Sex: Male
  Weight: 85.5 kg

DRUGS (1)
  1. UDENYCA [Suspect]
     Active Substance: PEGFILGRASTIM-CBQV
     Indication: Prophylaxis
     Dosage: STRENGTH: 6MG/0.6ML?FREQUENCY: EVERY THREE WEEKS
     Dates: start: 20250918

REACTIONS (4)
  - Device malfunction [Unknown]
  - Product dose omission issue [Unknown]
  - Device malfunction [Unknown]
  - Product dose omission issue [Unknown]

NARRATIVE: CASE EVENT DATE: 20250901
